FAERS Safety Report 12729186 (Version 1)
Quarter: 2016Q3

REPORT INFORMATION
  Report Type: Other
  Country: JP (occurrence: JP)
  Receive Date: 20160909
  Receipt Date: 20160909
  Transmission Date: 20161109
  Serious: Yes (Other)
  Sender: FDA-Public Use
  Company Number: JP-CELLTRION INC.-2016JP008535

PATIENT

DRUGS (16)
  1. ZOLPIDEM [Concomitant]
     Active Substance: ZOLPIDEM\ZOLPIDEM TARTRATE
     Indication: INSOMNIA
     Dosage: 5 MG, DAILY
     Route: 065
     Dates: start: 20130905, end: 20150819
  2. LEPETAN [Concomitant]
     Active Substance: BUPRENORPHINE HYDROCHLORIDE
     Indication: ABDOMINAL PAIN
     Dosage: 0.3 MG/DOSE, AS NEEDED
     Route: 065
     Dates: start: 20150811, end: 20151002
  3. INFLIXIMAB BS FOR I.V. INFUSION100 (CTH) [Suspect]
     Active Substance: INFLIXIMAB
     Indication: COLITIS ULCERATIVE
     Dosage: 220 MG/BODY/DAY
     Route: 042
     Dates: start: 20150814, end: 20150814
  4. BFLUID [Concomitant]
     Active Substance: AMINO ACIDS\DEXTROSE\ELECTROLYTES NOS\VITAMINS
     Indication: FLUID REPLACEMENT
     Dosage: 1000 ML, DAILY
     Route: 065
     Dates: start: 20150815, end: 20150817
  5. ALBUMIN BEHRING [Concomitant]
     Active Substance: ALBUMIN HUMAN
     Indication: NUTRITIONAL SUPPLEMENTATION
     Dosage: 100 ML, DAILY
     Route: 065
     Dates: start: 20150908, end: 20150908
  6. INFLIXIMAB BS FOR I.V. INFUSION100 (CTH) [Suspect]
     Active Substance: INFLIXIMAB
     Dosage: 220 MG/BODY/DAY
     Route: 042
     Dates: start: 20150916, end: 20150916
  7. PRIMPERAN [Concomitant]
     Active Substance: METOCLOPRAMIDE HYDROCHLORIDE
     Indication: NAUSEA
     Dosage: 10 MG/DOSE, AS NEEDED
     Route: 065
     Dates: start: 20150803, end: 20151002
  8. ELNEOPA NO.2 [Concomitant]
     Active Substance: AMINO ACIDS\CARBOHYDRATES\ELECTROLYTES NOS\VITAMINS
     Indication: COLITIS ULCERATIVE
     Dosage: 2000 ML, DAILY
     Dates: start: 20150807, end: 20150814
  9. ELNEOPA NO.2 [Concomitant]
     Active Substance: AMINO ACIDS\CARBOHYDRATES\ELECTROLYTES NOS\VITAMINS
     Dosage: 2000 MG, DAILY
     Route: 065
     Dates: start: 20150817, end: 20151022
  10. ACELIO [Concomitant]
     Active Substance: ACETAMINOPHEN
     Indication: ABDOMINAL PAIN
     Dosage: 1000 MG/DOSE, AS NEEDED
     Route: 065
     Dates: start: 20150810, end: 20151002
  11. SULFAMETHOXAZOLE AND TRIMETHOPRIM [Concomitant]
     Active Substance: SULFAMETHOXAZOLE\TRIMETHOPRIM
     Indication: INFECTION PROPHYLAXIS
     Dosage: 4 DF, 1/WEEK
     Route: 065
     Dates: start: 20150814, end: 20151002
  12. GASTER [Concomitant]
     Active Substance: FAMOTIDINE
     Indication: PROPHYLAXIS AGAINST GASTROINTESTINAL ULCER
     Dosage: 40 MG, DAILY
     Route: 065
     Dates: start: 20150812, end: 20150819
  13. INTRALIPOS [Concomitant]
     Active Substance: SOYBEAN OIL
     Indication: NUTRITIONAL SUPPLEMENTATION
     Dosage: 100 ML, DAILY
     Route: 065
     Dates: start: 20150905, end: 20151001
  14. SOLYUGEN G [Concomitant]
     Indication: FLUID REPLACEMENT
     Dosage: 500-1000 ML, DAILY
     Route: 065
     Dates: start: 20150815, end: 20150817
  15. SOLDEM 3A [Concomitant]
     Active Substance: CARBOHYDRATES\POTASSIUM CHLORIDE\SODIUM CHLORIDE\SODIUM LACTATE
     Indication: FLUID REPLACEMENT
     Dosage: 500-1000 ML, DAILY
     Route: 065
     Dates: start: 20150831, end: 20150902
  16. INFLIXIMAB BS FOR I.V. INFUSION100 (CTH) [Suspect]
     Active Substance: INFLIXIMAB
     Dosage: 210 MG/BODY/DAY
     Route: 042
     Dates: start: 20150824, end: 20150824

REACTIONS (6)
  - Device related infection [Recovered/Resolved]
  - Anaemia [Recovered/Resolved]
  - Jugular vein thrombosis [Recovered/Resolved]
  - Embolism arterial [Recovered/Resolved]
  - Nausea [Recovered/Resolved]
  - Delirium [Recovered/Resolved]

NARRATIVE: CASE EVENT DATE: 2015
